FAERS Safety Report 10350864 (Version 1)
Quarter: 2014Q3

REPORT INFORMATION
  Report Type: Spontaneous
  Country: US (occurrence: US)
  Receive Date: 20140730
  Receipt Date: 20140730
  Transmission Date: 20150326
  Serious: No
  Sender: FDA-Public Use
  Company Number: US-PFIZER INC-2014209708

PATIENT
  Age: 56 Year
  Sex: Female
  Weight: 127 kg

DRUGS (3)
  1. MORPHINE [Concomitant]
     Active Substance: MORPHINE
     Indication: PAIN
     Dosage: 30 MG, UNK
  2. TIZANIDINE [Concomitant]
     Active Substance: TIZANIDINE
     Indication: MUSCLE SPASMS
     Dosage: UNK
  3. LYRICA [Suspect]
     Active Substance: PREGABALIN
     Indication: NERVE INJURY
     Dosage: 200 MG, 1X/DAY (TWO ORAL CAPSULES OF 100MG EACH, EVERY NIGHT AT BED TIME)
     Route: 048
     Dates: start: 20140621, end: 20140721

REACTIONS (4)
  - Fatigue [Unknown]
  - Hypersomnia [Unknown]
  - Drug ineffective [Unknown]
  - Sleep disorder [Unknown]

NARRATIVE: CASE EVENT DATE: 2014
